FAERS Safety Report 10195392 (Version 2)
Quarter: 2014Q2

REPORT INFORMATION
  Report Type: Spontaneous
  Country: TR (occurrence: TR)
  Receive Date: 20140526
  Receipt Date: 20140526
  Transmission Date: 20141212
  Serious: Yes (Death, Hospitalization)
  Sender: FDA-Public Use
  Company Number: PHHY2011TR30784

PATIENT
  Age: 34 Year
  Sex: Female
  Weight: 70 kg

DRUGS (5)
  1. OXYTOCIN [Suspect]
     Dosage: UNK
  2. OXYTOCIN [Suspect]
     Dosage: 200 MIU, UNK
  3. ENOXAPARIN [Concomitant]
     Dosage: 20 MG, BID
  4. METOPROLOL [Concomitant]
     Dosage: UNK
  5. HEPARIN [Concomitant]
     Dosage: UNK

REACTIONS (10)
  - Pulmonary oedema [Fatal]
  - Orthopnoea [Fatal]
  - Dyspnoea [Fatal]
  - Myocardial infarction [Unknown]
  - Ventricular tachycardia [Unknown]
  - Chest pain [Unknown]
  - Tachycardia [Unknown]
  - Blood pressure increased [Unknown]
  - Postpartum haemorrhage [Unknown]
  - Maternal exposure during pregnancy [Recovered/Resolved]
